FAERS Safety Report 22031246 (Version 1)
Quarter: 2023Q1

REPORT INFORMATION
  Report Type: Spontaneous
  Country: CN (occurrence: CN)
  Receive Date: 20230223
  Receipt Date: 20230223
  Transmission Date: 20230417
  Serious: Yes (Hospitalization, Other)
  Sender: FDA-Public Use
  Company Number: None

PATIENT
  Age: 77 Year
  Sex: Male
  Weight: 46 kg

DRUGS (10)
  1. CYCLOPHOSPHAMIDE [Suspect]
     Active Substance: CYCLOPHOSPHAMIDE
     Indication: Lymphoma
     Dosage: FOR FIFTH PHASE OF AZA COMBINED WITH CHOP REGIMEN 0.6 G, QD, D1 DILUTED WITH SODIUM CHLORIDE 250 ML
     Route: 041
     Dates: start: 20221216, end: 20221216
  2. SODIUM CHLORIDE [Suspect]
     Active Substance: SODIUM CHLORIDE
     Indication: Medication dilution
     Dosage: FOR FIFTH PHASE OF AZA COMBINED WITH CHOP REGIMEN 250 ML, QD, D1 USED TO DILUTE 0.6 G CYCLOPHOSPHAMI
     Route: 041
     Dates: start: 20221216, end: 20221216
  3. SODIUM CHLORIDE [Suspect]
     Active Substance: SODIUM CHLORIDE
     Dosage: FOR FIFTH PHASE OF AZA COMBINED WITH CHOP REGIMEN 20 ML, QD D1 USED TO DILUTE 3 MG VINDESINE
     Route: 041
     Dates: start: 20221216, end: 20221216
  4. SODIUM CHLORIDE [Suspect]
     Active Substance: SODIUM CHLORIDE
     Dosage: FOR FIFTH PHASE OF AZA COMBINED WITH CHOP REGIMEN 50 ML, QD , D1 USED TO DILUTE 0.4 G AMIFOSTINE WIT
     Route: 050
     Dates: start: 20221216, end: 20221216
  5. VINDESINE SULFATE [Suspect]
     Active Substance: VINDESINE SULFATE
     Indication: Lymphoma
     Dosage: FOR FIFTH PHASE OF AZA COMBINED WITH CHOP REGIMEN 3MG, QD, D1 DILUTED WITH SODIUM CHLORIDE 20ML
     Route: 041
     Dates: start: 20221216, end: 20221216
  6. DOXORUBICIN [Suspect]
     Active Substance: DOXORUBICIN
     Indication: Lymphoma
     Dosage: FOR FIFTH PHASE OF AZA COMBINED WITH CHOP REGIMEN
     Route: 065
     Dates: start: 20221216, end: 20221216
  7. PREDNISONE [Suspect]
     Active Substance: PREDNISONE
     Indication: Lymphoma
     Dosage: FOR FIFTH PHASE OF AZA COMBINED WITH CHOP REGIMEN
     Route: 065
     Dates: start: 20221216, end: 20221216
  8. AMIFOSTINE [Suspect]
     Active Substance: AMIFOSTINE
     Indication: Lymphoma
     Dosage: FOR FIFTH PHASE OF AZA COMBINED WITH CHOP REGIMEN 0.4 G, QD, D1 DILUTED WITH SODIUM CHLORIDE 50ML WI
     Route: 050
     Dates: start: 20221216, end: 20221216
  9. AZACITIDINE [Suspect]
     Active Substance: AZACITIDINE
     Indication: Lymphoma
     Dosage: FOR FIFTH PHASE OF AZA COMBINED WITH CHOP REGIMEN 100 MG, QD, D1-D5 DILUTED WITH STERILE WATER 4 ML
     Route: 058
     Dates: start: 20221216, end: 20221220
  10. STERILE WATER [Suspect]
     Active Substance: WATER
     Indication: Medication dilution
     Dosage: FOR FIFTH PHASE OF AZA COMBINED WITH CHOP REGIMEN 4 ML, QD, D1-D5 USED TO DILUTE 100 MG AZACITIDINE
     Route: 058
     Dates: start: 20221216, end: 20221220

REACTIONS (1)
  - White blood cell count decreased [Recovering/Resolving]

NARRATIVE: CASE EVENT DATE: 20221230
